FAERS Safety Report 15564449 (Version 1)
Quarter: 2018Q4

REPORT INFORMATION
  Report Type: Spontaneous
  Country: US (occurrence: US)
  Receive Date: 20181030
  Receipt Date: 20181030
  Transmission Date: 20190205
  Serious: No
  Sender: FDA-Public Use
  Company Number: US-APOTEX-2018AP016986

PATIENT
  Sex: Female

DRUGS (1)
  1. FLUTICASONE PROPIONATE. [Suspect]
     Active Substance: FLUTICASONE PROPIONATE
     Indication: RESPIRATORY DISTRESS
     Dosage: UNK
     Route: 065
     Dates: start: 201804, end: 201805

REACTIONS (3)
  - Nasal crusting [Unknown]
  - Drug ineffective [Unknown]
  - Nasal injury [Unknown]

NARRATIVE: CASE EVENT DATE: 201805
